FAERS Safety Report 6721737-5 (Version None)
Quarter: 2010Q2

REPORT INFORMATION
  Report Type: 
  Country: None (occurrence: None)
  Receive Date: 20100512
  Receipt Date: 20100428
  Transmission Date: 20101027
  Serious: Yes (Hospitalization)
  Sender: FDA-Public Use
  Company Number: US-GENENTECH-300819

PATIENT
  Sex: Male
  Weight: 72.562 kg

DRUGS (8)
  1. RANIBIZUMAB [Suspect]
     Indication: DIABETIC RETINOPATHY
     Dosage: 0.5 MG, UNK
     Route: 031
     Dates: start: 20080303, end: 20081203
  2. RANIBIZUMAB [Suspect]
     Indication: IRIS NEOVASCULARISATION
  3. LASIX [Concomitant]
     Indication: DRUG USE FOR UNKNOWN INDICATION
  4. ENALAPRIL MALEATE [Concomitant]
     Indication: DRUG USE FOR UNKNOWN INDICATION
  5. HYDRALAZINE HCL [Concomitant]
     Indication: DRUG USE FOR UNKNOWN INDICATION
  6. AMLODIPINE [Concomitant]
     Indication: DRUG USE FOR UNKNOWN INDICATION
  7. METOPROLOL TARTRATE [Concomitant]
     Indication: DRUG USE FOR UNKNOWN INDICATION
  8. METFORMIN HYDROCHLORIDE [Concomitant]
     Indication: DRUG USE FOR UNKNOWN INDICATION

REACTIONS (1)
  - SKIN ULCER [None]
